FAERS Safety Report 7068108-2 (Version None)
Quarter: 2010Q4

REPORT INFORMATION
  Report Type: 
  Country: None (occurrence: None)
  Receive Date: 20101028
  Receipt Date: 20101018
  Transmission Date: 20110411
  Serious: Yes (Death, Other)
  Sender: FDA-Public Use
  Company Number: US-ROCHE-628132

PATIENT

DRUGS (4)
  1. BEVACIZUMAB [Suspect]
     Indication: GLIOMA
     Route: 065
  2. IRINOTECAN HCL [Concomitant]
     Indication: GLIOMA
  3. CARBOPLATIN [Concomitant]
     Indication: GLIOMA
  4. TEMOZOLOMIDE [Concomitant]
     Indication: GLIOMA

REACTIONS (5)
  - DRUG TOXICITY [None]
  - INTESTINAL PERFORATION [None]
  - MALIGNANT NEOPLASM PROGRESSION [None]
  - OSTEONECROSIS [None]
  - PULMONARY EMBOLISM [None]
